FAERS Safety Report 5840609-1 (Version None)
Quarter: 2008Q3

REPORT INFORMATION
  Report Type: 
  Country: None (occurrence: None)
  Receive Date: 20080731
  Receipt Date: 20080421
  Transmission Date: 20090109
  Serious: No
  Sender: FDA-Public Use
  Company Number: US200803005689

PATIENT
  Age: 56 Year
  Sex: Female
  Weight: 85.3 kg

DRUGS (10)
  1. BYETTA [Suspect]
     Indication: TYPE 2 DIABETES MELLITUS
     Dosage: 5 UG, 2/D, SUBCUTANEOUS
     Route: 058
     Dates: start: 20080101
  2. LANTUS [Concomitant]
  3. NOVOLOG [Concomitant]
  4. METFORMIN HCL [Concomitant]
  5. PLAVIX [Concomitant]
  6. COZAAR [Concomitant]
  7. LASIX [Concomitant]
  8. TOPROL-XL [Concomitant]
  9. IRON (IRON) [Concomitant]
  10. VYTORIN (EZETIMIBIE, SIMVASTATIN) [Concomitant]

REACTIONS (5)
  - BLOOD GLUCOSE INCREASED [None]
  - MALAISE [None]
  - OROPHARYNGEAL PAIN [None]
  - URINARY TRACT INFECTION [None]
  - WEIGHT DECREASED [None]
